FAERS Safety Report 19754171 (Version 1)
Quarter: 2021Q3

REPORT INFORMATION
  Report Type: Spontaneous
  Country: US (occurrence: US)
  Receive Date: 20210827
  Receipt Date: 20210827
  Transmission Date: 20211014
  Serious: Yes (Other)
  Sender: FDA-Public Use
  Company Number: US-GLAXOSMITHKLINE-US2021GSK179320

PATIENT
  Sex: Male

DRUGS (20)
  1. RANITIDINE CAPSULE [Suspect]
     Active Substance: RANITIDINE
     Indication: DYSPEPSIA
     Dosage: 75 MG, DAILY 1992 TO 2002 AND 2004 TO SUMMER 2020
     Route: 065
     Dates: start: 199201, end: 202007
  2. ZANTAC [Suspect]
     Active Substance: RANITIDINE HYDROCHLORIDE
     Indication: OESOPHAGEAL DISORDER
  3. ZANTAC [Suspect]
     Active Substance: RANITIDINE HYDROCHLORIDE
     Indication: DYSPEPSIA
     Dosage: 75 MG, DAILY 1992 TO 2002 AND 2004 TO SUMMER 2020
     Route: 065
     Dates: start: 199201, end: 202007
  4. ZANTAC [Suspect]
     Active Substance: RANITIDINE HYDROCHLORIDE
     Indication: DYSPEPSIA
     Dosage: 75 MG, DAILY 1992 TO 2002 AND 2004 TO SUMMER 2020
     Route: 065
     Dates: start: 199201, end: 202007
  5. RANITIDINE. [Suspect]
     Active Substance: RANITIDINE
     Indication: DYSPEPSIA
     Dosage: 75 MG, DAILY 1992 TO 2002 AND 2004 TO SUMMER 2020
     Route: 065
     Dates: start: 199201, end: 202007
  6. ZANTAC [Suspect]
     Active Substance: RANITIDINE HYDROCHLORIDE
     Indication: DYSPEPSIA
     Dosage: 75 MG, DAILY FROM 1992  TO 2002 AND 2004 TO SUMMER 2020
     Route: 065
     Dates: start: 199201, end: 202007
  7. RANITIDINE CAPSULE [Suspect]
     Active Substance: RANITIDINE
     Indication: OESOPHAGEAL DISORDER
     Dosage: 150 MG, DAILY 1992 TO 2002 AND 2004 TO SUMMER 2020
     Route: 065
     Dates: start: 199201, end: 202007
  8. RANITIDINE. [Suspect]
     Active Substance: RANITIDINE
     Indication: DYSPEPSIA
     Dosage: 75 MG, DAILY 1992 TO 2002 AND 2004 TO SUMMER 2020
     Route: 065
     Dates: start: 199201, end: 202007
  9. RANITIDINE. [Suspect]
     Active Substance: RANITIDINE
     Indication: OESOPHAGEAL DISORDER
     Dosage: 150 MG, DAILY 1992 TO 2002 AND 2004 TO SUMMER 2020
     Route: 065
     Dates: start: 199201, end: 202007
  10. RANITIDINE. [Suspect]
     Active Substance: RANITIDINE
     Indication: OESOPHAGEAL DISORDER
     Dosage: 150 MG, DAILY 1992 TO 2002 AND 2004 TO SUMMER 2020
     Route: 065
     Dates: start: 199201, end: 202007
  11. ZANTAC [Suspect]
     Active Substance: RANITIDINE HYDROCHLORIDE
     Indication: DYSPEPSIA
     Dosage: UMAY HAVE USED IT JUST ONE TIME
     Route: 065
     Dates: start: 199201, end: 199201
  12. ZANTAC [Suspect]
     Active Substance: RANITIDINE HYDROCHLORIDE
     Indication: OESOPHAGEAL DISORDER
  13. RANITIDINE HYDROCHLORIDE. [Suspect]
     Active Substance: RANITIDINE HYDROCHLORIDE
     Indication: DYSPEPSIA
     Dosage: 75 MG, DAILY FROM 1992  TO 2002 AND 2004 TO SUMMER 2020
     Route: 065
     Dates: start: 199201, end: 202007
  14. ZANTAC [Suspect]
     Active Substance: RANITIDINE HYDROCHLORIDE
     Indication: OESOPHAGEAL DISORDER
     Dosage: 150 MG, DAILY FROM 1992  TO 2002 AND 2004 TO SUMMER 2020
     Route: 065
     Dates: start: 199201, end: 202007
  15. ZANTAC [Suspect]
     Active Substance: RANITIDINE HYDROCHLORIDE
     Indication: DYSPEPSIA
     Dosage: MAY HAVE HAD INJECTION OR LIQUID ONCE IN 1992, JUST ONE TIME
     Route: 065
     Dates: start: 199201, end: 199201
  16. ZANTAC [Suspect]
     Active Substance: RANITIDINE HYDROCHLORIDE
     Indication: OESOPHAGEAL DISORDER
     Dosage: 150 MG, DAILY 1992 TO 2002 AND 2004 TO SUMMER 2020
     Route: 065
     Dates: start: 199201, end: 202007
  17. RANITIDINE HYDROCHLORIDE. [Suspect]
     Active Substance: RANITIDINE HYDROCHLORIDE
     Indication: OESOPHAGEAL DISORDER
     Dosage: 150 MG, DAILY FROM 1992  TO 2002 AND 2004 TO SUMMER 2020
     Route: 065
     Dates: start: 199201, end: 202007
  18. ZANTAC [Suspect]
     Active Substance: RANITIDINE HYDROCHLORIDE
     Indication: OESOPHAGEAL DISORDER
     Dosage: 150 MG, DAILY 1992 TO 2002 AND 2004 TO SUMMER 2020
     Route: 065
     Dates: start: 199201, end: 202007
  19. RANITIDINE. [Suspect]
     Active Substance: RANITIDINE
     Indication: DYSPEPSIA
     Dosage: 75 MG, DAILY 1992 TO 2002 AND 2004 TO SUMMER 2020
     Route: 065
     Dates: start: 199201, end: 202007
  20. RANITIDINE. [Suspect]
     Active Substance: RANITIDINE
     Indication: OESOPHAGEAL DISORDER
     Dosage: 150 MG, DAILY 1992 TO 2002 AND 2004 TO SUMMER 2020
     Route: 065
     Dates: start: 199201, end: 202007

REACTIONS (1)
  - Colorectal cancer [Unknown]
